FAERS Safety Report 11109499 (Version 4)
Quarter: 2015Q3

REPORT INFORMATION
  Report Type: Spontaneous
  Country: US (occurrence: US)
  Receive Date: 20150513
  Receipt Date: 20150724
  Transmission Date: 20151125
  Serious: No
  Sender: FDA-Public Use
  Company Number: US-BAYER-2015-161545

PATIENT
  Age: 33 Year
  Sex: Female
  Weight: 97.5 kg

DRUGS (8)
  1. AMBRISENTAN [Suspect]
     Active Substance: AMBRISENTAN
     Indication: PULMONARY HYPERTENSION
     Dosage: 10 MG, QD
     Route: 065
     Dates: start: 20131017
  2. REMODULIN [Suspect]
     Active Substance: TREPROSTINIL
     Indication: PULMONARY ARTERIAL HYPERTENSION
     Dosage: 0.089 ?G/KG/MIN
     Route: 058
     Dates: start: 20120927
  3. REMODULIN [Suspect]
     Active Substance: TREPROSTINIL
     Indication: PULMONARY ARTERIAL HYPERTENSION
     Dosage: 0.101 ?G/KG/MIN
     Route: 058
     Dates: start: 20120927
  4. LETAIRIS [Concomitant]
     Active Substance: AMBRISENTAN
     Dosage: UNK
  5. REMODULIN [Suspect]
     Active Substance: TREPROSTINIL
     Indication: PULMONARY ARTERIAL HYPERTENSION
     Dosage: 0.089 ?G/KG/MIN
     Route: 058
     Dates: start: 20120910
  6. AMBRISENTAN [Suspect]
     Active Substance: AMBRISENTAN
     Indication: PRODUCT USED FOR UNKNOWN INDICATION
  7. ADEMPAS [Suspect]
     Active Substance: RIOCIGUAT
     Indication: PRODUCT USED FOR UNKNOWN INDICATION
     Dosage: UNK
     Route: 065
     Dates: start: 20150302
  8. REVATIO [Concomitant]
     Active Substance: SILDENAFIL CITRATE

REACTIONS (12)
  - Fatigue [None]
  - Flushing [Recovered/Resolved]
  - Vomiting [Recovered/Resolved]
  - Nausea [Recovering/Resolving]
  - Decreased appetite [None]
  - Dizziness [None]
  - Dyspepsia [None]
  - Headache [None]
  - Accidental overdose [None]
  - Labelled drug-drug interaction medication error [None]
  - Back pain [None]
  - Asthenia [None]
